FAERS Safety Report 8020511-X (Version None)
Quarter: 2012Q1

REPORT INFORMATION
  Report Type: 
  Country: None (occurrence: None)
  Receive Date: 20120103
  Receipt Date: 20111228
  Transmission Date: 20120608
  Serious: Yes (Hospitalization)
  Sender: FDA-Public Use
  Company Number: JP-ROCHE-800697

PATIENT
  Sex: Female

DRUGS (26)
  1. PREDNISOLONE [Concomitant]
     Indication: RHEUMATOID ARTHRITIS
     Route: 048
  2. PREDNISOLONE [Concomitant]
     Route: 048
     Dates: start: 20081001, end: 20081028
  3. PREDNISOLONE [Concomitant]
     Route: 048
     Dates: start: 20081126, end: 20090106
  4. PREDNISOLONE [Concomitant]
     Dosage: UNCERTAIN DOSAGE (5MG OR MORE)
     Route: 048
  5. PERSANTIN [Concomitant]
     Route: 048
     Dates: start: 20090904, end: 20100902
  6. SELBEX [Concomitant]
     Dosage: PERORAL AGENT
     Route: 048
  7. LANSOPRAZOLE [Concomitant]
     Indication: PROPHYLAXIS
     Route: 048
  8. CLARITHROMYCIN [Concomitant]
     Indication: PROPHYLAXIS
     Dosage: TAPE
     Route: 062
     Dates: start: 20090904, end: 20100902
  9. ACTEMRA [Suspect]
     Route: 041
     Dates: start: 20090605, end: 20100319
  10. ACTEMRA [Suspect]
     Indication: RHEUMATOID ARTHRITIS
     Route: 041
     Dates: start: 20080903, end: 20090430
  11. LOXOPROFEN [Concomitant]
     Indication: RHEUMATOID ARTHRITIS
     Route: 048
     Dates: end: 20100902
  12. BREDININ [Concomitant]
     Indication: RHEUMATOID ARTHRITIS
     Route: 048
     Dates: start: 20091002, end: 20100405
  13. MARZULENE-S [Concomitant]
     Route: 048
     Dates: start: 20090904, end: 20100902
  14. ALENDRONATE SODIUM [Concomitant]
     Indication: PROPHYLAXIS
     Route: 048
  15. LEFTOSE [Concomitant]
     Dosage: PERORAL AGENT
     Route: 048
     Dates: start: 20090904, end: 20100902
  16. VESICARE [Concomitant]
     Route: 048
     Dates: start: 20090904, end: 20100902
  17. AZATHIOPRINE [Suspect]
     Indication: RHEUMATOID ARTHRITIS
     Route: 048
  18. PREDNISOLONE [Concomitant]
     Route: 048
     Dates: start: 20081029, end: 20081125
  19. PREDNISOLONE [Concomitant]
     Route: 048
     Dates: start: 20090107, end: 20090203
  20. PREDNISOLONE [Concomitant]
     Route: 048
     Dates: start: 20090204, end: 20090429
  21. SELBEX [Concomitant]
     Dosage: PERORAL AGENT
     Route: 048
     Dates: start: 20100415, end: 20100902
  22. RIBOFLAVIN TAB [Concomitant]
     Dosage: PERORAL AGENT
     Route: 048
     Dates: start: 20090904, end: 20100902
  23. GASCON [Concomitant]
     Dosage: PERORAL AGENT
     Route: 048
     Dates: start: 20090904, end: 20100902
  24. BIO-THREE [Concomitant]
     Route: 048
     Dates: start: 20090904, end: 20100902
  25. SAFFRON [Concomitant]
     Route: 048
     Dates: start: 20090904, end: 20100902
  26. MUCODYNE [Concomitant]
     Indication: PROPHYLAXIS
     Route: 048
     Dates: start: 20100804, end: 20100902

REACTIONS (2)
  - PNEUMONIA [None]
  - HAEMOPTYSIS [None]
